FAERS Safety Report 7554598-5 (Version None)
Quarter: 2011Q2

REPORT INFORMATION
  Report Type: 
  Country: None (occurrence: None)
  Receive Date: 20110617
  Receipt Date: 20110411
  Transmission Date: 20111010
  Serious: No
  Sender: FDA-Public Use
  Company Number: US-MYLANLABS-2011S1005247

PATIENT
  Age: 70 Year
  Sex: Female

DRUGS (3)
  1. XANAX [Concomitant]
  2. CARBIDOPA AND LEVODOPA [Suspect]
     Indication: PARKINSON'S DISEASE
     Dosage: PT TAKES 500/2000MG DAILY
     Route: 048
     Dates: start: 20101114, end: 20110314
  3. CARBIDOPA AND LEVODOPA [Suspect]
     Dosage: PT TAKES 500/2000MG DAILY
     Route: 048
     Dates: start: 20101114, end: 20110314

REACTIONS (9)
  - MIGRAINE WITH AURA [None]
  - DIPLOPIA [None]
  - CELLULITIS [None]
  - JOINT SWELLING [None]
  - POLLAKIURIA [None]
  - FLUID RETENTION [None]
  - EYE PAIN [None]
  - ANXIETY [None]
  - HEADACHE [None]
